FAERS Safety Report 5371374-2 (Version None)
Quarter: 2007Q2

REPORT INFORMATION
  Report Type: 
  Country: None (occurrence: None)
  Receive Date: 20070615
  Receipt Date: 20060914
  Transmission Date: 20071010
  Serious: Yes (Other)
  Sender: FDA-Public Use
  Company Number: 200617755US

PATIENT
  Age: 70 Year
  Sex: Female
  Weight: 77 kg

DRUGS (17)
  1. LANTUS [Suspect]
     Indication: DIABETES MELLITUS INSULIN-DEPENDENT
     Dosage: LANTUS BY VIAL 30 U BID
     Dates: start: 20060101, end: 20060913
  2. LANTUS [Suspect]
     Indication: DIABETES MELLITUS INSULIN-DEPENDENT
     Dosage: LANTUS BY CARTRIDGE 40 U BID
     Dates: start: 20060914
  3. OPTICLIK [Suspect]
     Indication: DIABETES MELLITUS INSULIN-DEPENDENT
     Dates: start: 20060911
  4. INSULIN (NOVOLIN/00030501/) [Concomitant]
  5. MYCOPHENOLATE MFETIL (CELLCEPT) [Concomitant]
  6. POTASSIUM CHLORIDE (KLOR-CON) [Concomitant]
  7. METOPROLOL SUCCINATE [Concomitant]
  8. FAMOTIDINE [Concomitant]
  9. CLONIDINE [Concomitant]
  10. PREDNISONE [Concomitant]
  11. SIROLIMUS (RAPAMUNE) [Concomitant]
  12. HYDRAZINE [Concomitant]
  13. LISINOPRIL [Concomitant]
  14. AMLODIPINE (NORVASC/00972401/) [Concomitant]
  15. BUMETANIDE [Concomitant]
  16. ATORVASTATIN CALCIUM (LIPITOR) [Concomitant]
  17. CYCLOSPORINE [Concomitant]

REACTIONS (1)
  - HYPERGLYCAEMIA [None]
